FAERS Safety Report 7123659-7 (Version None)
Quarter: 2010Q4

REPORT INFORMATION
  Report Type: 
  Country: None (occurrence: None)
  Receive Date: 20101125
  Receipt Date: 20101123
  Transmission Date: 20110411
  Serious: Yes (Other)
  Sender: FDA-Public Use
  Company Number: NO-PFIZER INC-2010155433

PATIENT
  Age: 38 Year
  Sex: Female

DRUGS (1)
  1. ZITHROMAX [Suspect]
     Dosage: 500 MG, 1X/DAY
     Dates: start: 20101117, end: 20101119

REACTIONS (8)
  - CHILLS [None]
  - DIARRHOEA [None]
  - DRY MOUTH [None]
  - MALAISE [None]
  - NAUSEA [None]
  - POISONING [None]
  - POLLAKIURIA [None]
  - RESTLESSNESS [None]
